FAERS Safety Report 10655276 (Version 1)
Quarter: 2014Q4

REPORT INFORMATION
  Report Type: Spontaneous
  Country: FR (occurrence: FR)
  Receive Date: 20141216
  Receipt Date: 20141216
  Transmission Date: 20150529
  Serious: Yes (Disabling)
  Sender: FDA-Public Use
  Company Number: FR-PFIZER INC-2014339628

PATIENT
  Age: 67 Year
  Sex: Male

DRUGS (16)
  1. TAHOR [Suspect]
     Active Substance: ATORVASTATIN CALCIUM
     Dosage: UNK
     Route: 048
     Dates: end: 20140731
  2. SKENAN [Suspect]
     Active Substance: MORPHINE SULFATE
     Route: 048
  3. INEXIUM /01479302/ [Suspect]
     Active Substance: ESOMEPRAZOLE MAGNESIUM
     Route: 048
  4. SALAZOPYRINE [Suspect]
     Active Substance: SULFASALAZINE
     Route: 048
  5. CACIT D3 [Suspect]
     Active Substance: CALCIUM\CHOLECALCIFEROL
     Route: 048
  6. PLAQUENIL [Suspect]
     Active Substance: HYDROXYCHLOROQUINE SULFATE
     Route: 048
  7. LEXOMIL ROCHE [Suspect]
     Active Substance: BROMAZEPAM
     Route: 048
  8. LASILIX [Suspect]
     Active Substance: FUROSEMIDE
     Route: 048
  9. ACTISKENAN [Concomitant]
     Active Substance: MORPHINE SULFATE
     Dosage: UNK
  10. CYMBALTA [Suspect]
     Active Substance: DULOXETINE HYDROCHLORIDE
     Route: 048
  11. AVODART [Suspect]
     Active Substance: DUTASTERIDE
     Route: 048
  12. FORLAX [Suspect]
     Active Substance: POLYETHYLENE GLYCOL 4000
     Route: 048
  13. METOJECT [Suspect]
     Active Substance: METHOTREXATE SODIUM
     Route: 058
  14. RIVOTRIL [Suspect]
     Active Substance: CLONAZEPAM
     Route: 048
  15. CORTANCYL [Suspect]
     Active Substance: PREDNISONE
     Route: 048
  16. FOSAMAX [Suspect]
     Active Substance: ALENDRONATE SODIUM
     Route: 048

REACTIONS (3)
  - Peripheral sensorimotor neuropathy [Unknown]
  - Gait disturbance [Unknown]
  - Polyneuropathy [Unknown]

NARRATIVE: CASE EVENT DATE: 201309
